FAERS Safety Report 23639269 (Version 1)
Quarter: 2024Q1

REPORT INFORMATION
  Report Type: Spontaneous
  Country: FR (occurrence: FR)
  Receive Date: 20240316
  Receipt Date: 20240316
  Transmission Date: 20240409
  Serious: Yes (Other)
  Sender: FDA-Public Use
  Company Number: None

PATIENT
  Age: 28 Year
  Sex: Female

DRUGS (2)
  1. OMEPRAZOLE [Suspect]
     Active Substance: OMEPRAZOLE
     Indication: Peptic ulcer
     Route: 048
     Dates: start: 20240115, end: 20240115
  2. BACTRIM [Suspect]
     Active Substance: SULFAMETHOXAZOLE\TRIMETHOPRIM
     Indication: Peptic ulcer
     Route: 048
     Dates: start: 20240105, end: 20240113

REACTIONS (2)
  - Face oedema [Unknown]
  - Rash pruritic [Unknown]

NARRATIVE: CASE EVENT DATE: 20240115
